FAERS Safety Report 5297258-6 (Version None)
Quarter: 2007Q2

REPORT INFORMATION
  Report Type: 
  Country: None (occurrence: None)
  Receive Date: 20070416
  Receipt Date: 20070405
  Transmission Date: 20071010
  Serious: Yes (Other)
  Sender: FDA-Public Use
  Company Number: CA-JNJFOC-20070400592

PATIENT
  Sex: Male

DRUGS (7)
  1. DURAGESIC-100 [Suspect]
     Indication: PAIN
     Route: 062
  2. SERC [Concomitant]
     Indication: MENIERE'S DISEASE
  3. GABAPENTIN [Concomitant]
     Indication: PAIN
  4. NAPROXEN [Concomitant]
     Indication: PAIN
  5. ATACAND [Concomitant]
  6. HYDROCHLOROTHIAZIDE [Concomitant]
  7. METFORMIN [Concomitant]
     Indication: DIABETES MELLITUS

REACTIONS (4)
  - FATIGUE [None]
  - INSOMNIA [None]
  - SPUTUM DISCOLOURED [None]
  - STOMACH DISCOMFORT [None]
